FAERS Safety Report 24192525 (Version 2)
Quarter: 2024Q3

REPORT INFORMATION
  Report Type: Report from Study
  Country: US (occurrence: US)
  Receive Date: 20240809
  Receipt Date: 20240926
  Transmission Date: 20241016
  Serious: Yes (Hospitalization, Other)
  Sender: ACADIA PHARMACEUTICALS
  Company Number: US-ACADIA PHARMACEUTICALS INC.-ACA-2024-PIM-003724

PATIENT
  Age: 82 Year
  Sex: Female

DRUGS (1)
  1. NUPLAZID [Suspect]
     Active Substance: PIMAVANSERIN TARTRATE
     Indication: Parkinson^s disease psychosis
     Dosage: 34 MILLIGRAM, QD
     Route: 048

REACTIONS (12)
  - Non-alcoholic steatohepatitis [Recovered/Resolved]
  - Renal failure [Recovered/Resolved]
  - Pericardial effusion [Unknown]
  - Hyperammonaemia [Recovered/Resolved]
  - Pleural effusion [Unknown]
  - Dyspnoea [Unknown]
  - SARS-CoV-2 test positive [Recovered/Resolved]
  - Patient restraint [Recovered/Resolved]
  - Diarrhoea [Recovered/Resolved]
  - Memory impairment [Recovered/Resolved]
  - Insomnia [Recovered/Resolved]
  - Aggression [Recovered/Resolved]

NARRATIVE: CASE EVENT DATE: 20240801
